FAERS Safety Report 4312172-8 (Version None)
Quarter: 2004Q1

REPORT INFORMATION
  Report Type: 
  Country: None (occurrence: None)
  Receive Date: 20040304
  Receipt Date: 20040304
  Transmission Date: 20041129
  Serious: No
  Sender: FDA-Public Use
  Company Number: None

PATIENT
  Sex: Female
  Weight: 97.977 kg

DRUGS (14)
  1. REMICADE [Suspect]
     Indication: RHEUMATOID ARTHRITIS
     Dosage: 1000 MG Q4WKS INTRAVENOUS
     Route: 042
     Dates: start: 20020829, end: 20031001
  2. PREDNISONE [Concomitant]
  3. COUMADIN [Concomitant]
  4. DILTIAZEM [Concomitant]
  5. ISOSORBIDE [Concomitant]
  6. PRILOSEC [Concomitant]
  7. GLUCOVANCE [Concomitant]
  8. LASIX [Concomitant]
  9. DIGOXIN [Concomitant]
  10. ZESTORETIC [Concomitant]
  11. ZOCOR [Concomitant]
  12. TYLENOL (CAPLET) [Concomitant]
  13. ULTRACET [Concomitant]
  14. STROVITE ADVANCED [Concomitant]

REACTIONS (20)
  - ACQUIRED OESOPHAGEAL WEB [None]
  - ACTIVITIES OF DAILY LIVING IMPAIRED [None]
  - ANTINUCLEAR ANTIBODY POSITIVE [None]
  - ARTHRALGIA [None]
  - BIOPSY BREAST NORMAL [None]
  - CONDITION AGGRAVATED [None]
  - DYSPHAGIA [None]
  - EYE INFECTION [None]
  - GASTRITIS [None]
  - GRANULOMA [None]
  - HIATUS HERNIA [None]
  - LIP PAIN [None]
  - LUPUS-LIKE SYNDROME [None]
  - RASH [None]
  - RENAL ARTERY STENOSIS [None]
  - STOMATITIS [None]
  - SWOLLEN TONGUE [None]
  - UPPER RESPIRATORY TRACT INFECTION [None]
  - VASCULAR OCCLUSION [None]
  - VOCAL CORD DISORDER [None]
